FAERS Safety Report 5376801-2 (Version None)
Quarter: 2007Q3

REPORT INFORMATION
  Report Type: 
  Country: None (occurrence: None)
  Receive Date: 20070703
  Receipt Date: 20070620
  Transmission Date: 20080115
  Serious: Yes (Other)
  Sender: FDA-Public Use
  Company Number: PHBS2007CN10452

PATIENT
  Age: 59 Year
  Sex: Male

DRUGS (2)
  1. CYCLOSPORINE [Suspect]
     Indication: LIVER TRANSPLANT
     Route: 065
  2. STEROIDS NOS [Concomitant]
     Indication: LIVER TRANSPLANT
     Route: 065

REACTIONS (13)
  - BONE MARROW FAILURE [None]
  - DELIRIUM [None]
  - ERYTHEMA [None]
  - GRAFT VERSUS HOST DISEASE [None]
  - HAEMOGLOBIN DECREASED [None]
  - HYPONATRAEMIA [None]
  - INAPPROPRIATE ANTIDIURETIC HORMONE SECRETION [None]
  - PLATELET COUNT DECREASED [None]
  - PYREXIA [None]
  - RASH MACULO-PAPULAR [None]
  - RESTLESSNESS [None]
  - SKIN EXFOLIATION [None]
  - WHITE BLOOD CELL COUNT DECREASED [None]
